FAERS Safety Report 11237171 (Version 1)
Quarter: 2015Q3

REPORT INFORMATION
  Report Type: Spontaneous
  Country: US (occurrence: US)
  Receive Date: 20150703
  Receipt Date: 20150703
  Transmission Date: 20151125
  Serious: Yes (Hospitalization, Other)
  Sender: FDA-Public Use
  Company Number: US-BEH-2015052034

PATIENT
  Sex: Female

DRUGS (2)
  1. GAMMAGARD [Suspect]
     Active Substance: HUMAN IMMUNOGLOBULIN G
     Indication: PRODUCT USED FOR UNKNOWN INDICATION
  2. HIZENTRA [Suspect]
     Active Substance: HUMAN IMMUNOGLOBULIN G
     Indication: PRODUCT USED FOR UNKNOWN INDICATION

REACTIONS (13)
  - Back disorder [Unknown]
  - Ovarian enlargement [Unknown]
  - Thyroid operation [Unknown]
  - Nodule [Unknown]
  - Escherichia infection [Unknown]
  - Sleep apnoea syndrome [Unknown]
  - Fatigue [Unknown]
  - Osteoporosis [Unknown]
  - Pancreatitis [Unknown]
  - Respiratory syncytial virus infection [Unknown]
  - Weight increased [Unknown]
  - Nephrolithiasis [Unknown]
  - Arthropathy [Unknown]
